FAERS Safety Report 4444608-6 (Version None)
Quarter: 2004Q3

REPORT INFORMATION
  Report Type: 
  Country: None (occurrence: None)
  Receive Date: 20040902
  Receipt Date: 20040823
  Transmission Date: 20050211
  Serious: Yes (Hospitalization)
  Sender: FDA-Public Use
  Company Number: 2004230071US

PATIENT
  Age: 63 Year
  Sex: Male
  Weight: 86.2 kg

DRUGS (15)
  1. DEPO-MEDROL [Suspect]
     Indication: RHEUMATOID ARTHRITIS
     Dosage: SEE IMAGE
     Route: 030
     Dates: start: 19940101
  2. DELTASONE [Suspect]
     Dosage: 10 MG, QD, ORAL
     Route: 048
  3. HUMULIN 30/70 (INSULIN HUMAN INJECTION, ISOPHANE) [Concomitant]
  4. HUMULIN R [Concomitant]
  5. HUMALOG [Concomitant]
  6. LORTAB [Concomitant]
  7. OXYCONTIN [Concomitant]
  8. ANTIVERT (MECLOZINE HYDROCHLORIDE) [Concomitant]
  9. SYNTHROID [Concomitant]
  10. PREVACID [Concomitant]
  11. PROZAC [Concomitant]
  12. NORVASC [Concomitant]
  13. COZAAR [Concomitant]
  14. LASIX [Concomitant]
  15. K-TAB [Concomitant]

REACTIONS (12)
  - BRONCHITIS [None]
  - CELLULITIS [None]
  - DISEASE PROGRESSION [None]
  - DISEASE RECURRENCE [None]
  - FEELING ABNORMAL [None]
  - IMPAIRED HEALING [None]
  - INFECTION IN AN IMMUNOCOMPROMISED HOST [None]
  - NUCLEAR MAGNETIC RESONANCE IMAGING BRAIN ABNORMAL [None]
  - ORAL FUNGAL INFECTION [None]
  - POST PROCEDURAL PAIN [None]
  - PRE-EXISTING CONDITION IMPROVED [None]
  - SINUSITIS [None]
